FAERS Safety Report 17573432 (Version 2)
Quarter: 2022Q1

REPORT INFORMATION
  Report Type: Spontaneous
  Country: CA (occurrence: CA)
  Receive Date: 20200323
  Receipt Date: 20220311
  Transmission Date: 20220423
  Serious: Yes (Other)
  Sender: FDA-Public Use
  Company Number: CA-PURDUE PHARMA-CAN-2020-0010752

PATIENT
  Age: 24 Year
  Sex: Female
  Weight: 58 kg

DRUGS (34)
  1. HYDROMORPHONE HYDROCHLORIDE [Suspect]
     Active Substance: HYDROMORPHONE HYDROCHLORIDE
     Indication: Product used for unknown indication
     Dosage: UNK
     Route: 065
  2. RITUXAN [Suspect]
     Active Substance: RITUXIMAB
     Indication: Graft versus host disease
     Dosage: UNK
     Route: 042
  3. RITUXAN [Suspect]
     Active Substance: RITUXIMAB
     Indication: Acute lymphocytic leukaemia
     Dosage: 4 DF, WEEKLY
     Route: 042
  4. ACETAMINOPHEN\TRAMADOL HYDROCHLORIDE [Concomitant]
     Active Substance: ACETAMINOPHEN\TRAMADOL HYDROCHLORIDE
  5. ACTONEL [Concomitant]
     Active Substance: RISEDRONATE SODIUM
  6. ACYCLOVIR                          /00587301/ [Concomitant]
  7. AMITRIPTYLINE [Concomitant]
     Active Substance: AMITRIPTYLINE
  8. AZITHROMYCIN [Concomitant]
     Active Substance: AZITHROMYCIN
  9. BACLOFEN [Concomitant]
     Active Substance: BACLOFEN
  10. BENADRYL                           /00000402/ [Concomitant]
  11. BETADERM                           /00008503/ [Concomitant]
  12. CYANOCOBALAMIN [Concomitant]
     Active Substance: CYANOCOBALAMIN
  13. DESOXIMETASONE [Concomitant]
     Active Substance: DESOXIMETASONE
  14. DIPHENHYDRAMINE HYDROCHLORIDE [Concomitant]
     Active Substance: DIPHENHYDRAMINE HYDROCHLORIDE
  15. FLUCONAZOLE [Concomitant]
     Active Substance: FLUCONAZOLE
  16. FLUOROMETHOLONE [Concomitant]
     Active Substance: FLUOROMETHOLONE
  17. FOLIC ACID [Concomitant]
     Active Substance: FOLIC ACID
  18. GABAPENTIN [Concomitant]
     Active Substance: GABAPENTIN
  19. GRAVOL [Concomitant]
     Active Substance: DIMENHYDRINATE
  20. HUMAN IMMUNOGLOBULIN G [Concomitant]
     Active Substance: HUMAN IMMUNOGLOBULIN G
  21. LYRICA [Concomitant]
     Active Substance: PREGABALIN
  22. METHOXSALEN [Concomitant]
     Active Substance: METHOXSALEN
  23. NAPROXEN [Concomitant]
     Active Substance: NAPROXEN
  24. PANTOLOC                           /01263204/ [Concomitant]
  25. PENTAMIDINE [Concomitant]
     Active Substance: PENTAMIDINE
  26. PREDNISONE [Concomitant]
     Active Substance: PREDNISONE
  27. PREMARIN [Concomitant]
     Active Substance: ESTROGENS, CONJUGATED
  28. ALBUTEROL [Concomitant]
     Active Substance: ALBUTEROL
  29. STATEX                             /00848101/ [Concomitant]
  30. TACROLIMUS [Concomitant]
     Active Substance: TACROLIMUS
  31. TOBRADEX [Concomitant]
     Active Substance: DEXAMETHASONE\TOBRAMYCIN
  32. VITAMIN B6 [Concomitant]
     Active Substance: PYRIDOXINE HYDROCHLORIDE
  33. VITAMIN E                          /00110501/ [Concomitant]
  34. ZOPICLONE [Concomitant]
     Active Substance: ZOPICLONE

REACTIONS (5)
  - Cardiac failure [Unknown]
  - Drug intolerance [Unknown]
  - Dysphagia [Unknown]
  - Off label use [Unknown]
  - Vomiting [Unknown]
